FAERS Safety Report 4405311-1 (Version None)
Quarter: 2004Q3

REPORT INFORMATION
  Report Type: 
  Country: None (occurrence: None)
  Receive Date: 20040723
  Receipt Date: 20040712
  Transmission Date: 20050211
  Serious: Yes (Other)
  Sender: FDA-Public Use
  Company Number: 200416950GDDC

PATIENT
  Age: 7 Month
  Sex: Male

DRUGS (1)
  1. DIABETA [Suspect]
     Indication: DRUG USE FOR UNKNOWN INDICATION
     Route: 065
     Dates: start: 20030601, end: 20030601

REACTIONS (4)
  - DRUG EXPOSURE DURING PREGNANCY [None]
  - HEARING IMPAIRED [None]
  - NERVOUS SYSTEM DISORDER [None]
  - REFLUX OESOPHAGITIS [None]
